FAERS Safety Report 7522638-5 (Version None)
Quarter: 2011Q2

REPORT INFORMATION
  Report Type: 
  Country: None (occurrence: None)
  Receive Date: 20110603
  Receipt Date: 20110510
  Transmission Date: 20111010
  Serious: Yes (Other)
  Sender: FDA-Public Use
  Company Number: US-MYLANLABS-2011S1008178

PATIENT
  Age: 30 Year
  Sex: Female
  Weight: 56.7 kg

DRUGS (14)
  1. SUCCINYLCHOLINE CHLORIDE [Concomitant]
  2. ROCURONIUM BROMIDE [Suspect]
     Dates: start: 20110413, end: 20110413
  3. ROCURONIUM BROMIDE [Suspect]
     Dates: start: 20110413, end: 20110413
  4. ROCURONIUM BROMIDE [Suspect]
     Dates: start: 20110413, end: 20110413
  5. ROCURONIUM BROMIDE [Suspect]
     Indication: MUSCLE RELAXANT THERAPY
     Dates: start: 20110413, end: 20110413
  6. FENTANYL [Concomitant]
  7. DEXAMETHASONE [Concomitant]
  8. ONDANSETRON [Concomitant]
  9. CEFAZOLIN [Concomitant]
  10. LIDOCAINE [Concomitant]
  11. ROCURONIUM BROMIDE [Suspect]
     Indication: GENERAL ANAESTHESIA
     Dates: start: 20110413, end: 20110413
  12. ROCURONIUM BROMIDE [Suspect]
     Dates: start: 20110413, end: 20110413
  13. VERSED [Concomitant]
  14. PROPOFOL [Concomitant]

REACTIONS (2)
  - NEUROMUSCULAR BLOCK PROLONGED [None]
  - DRUG EFFECT INCREASED [None]
